FAERS Safety Report 18738554 (Version 2)
Quarter: 2021Q1

REPORT INFORMATION
  Report Type: Spontaneous
  Country: US (occurrence: US)
  Receive Date: 20210114
  Receipt Date: 20210225
  Transmission Date: 20210419
  Serious: Yes (Hospitalization)
  Sender: FDA-Public Use
  Company Number: US-TEVA-2021-US-1867336

PATIENT
  Age: 70 Year
  Sex: Male

DRUGS (14)
  1. NOREPINEPHRINE. [Suspect]
     Active Substance: NOREPINEPHRINE
     Dosage: 10 MICROG/MIN
     Route: 065
  2. METHYLENE BLUE. [Suspect]
     Active Substance: METHYLENE BLUE
     Indication: VASOPLEGIA SYNDROME
     Route: 065
  3. EPINEPHRINE. [Suspect]
     Active Substance: EPINEPHRINE
     Indication: VASOPLEGIA SYNDROME
     Dosage: 2 MICROG/MIN
     Route: 065
  4. ANGIOTENSIN?II [Suspect]
     Active Substance: ANGIOTENSIN II
     Indication: VASOPLEGIA SYNDROME
     Dosage: 10 NG/KG/MIN
     Route: 065
  5. NOREPINEPHRINE. [Suspect]
     Active Substance: NOREPINEPHRINE
     Dosage: INCREASED DOSE TO MAINTAIN MAP }65 MM HG
     Route: 065
  6. EPINEPHRINE. [Suspect]
     Active Substance: EPINEPHRINE
     Dosage: UNSPECIFIED LOW DOSE
     Route: 065
  7. ARGININE VASOPRESSIN [Suspect]
     Active Substance: VASOPRESSIN
     Dosage: 0.04 UNITS/MIN
     Route: 065
  8. ANGIOTENSIN?II [Suspect]
     Active Substance: ANGIOTENSIN II
     Dosage: 15 NG/KG/MIN
     Route: 065
  9. FLUDROCORTISONE [Concomitant]
     Active Substance: FLUDROCORTISONE
     Indication: HYPOTENSION
     Route: 065
  10. HYDROCORTISONE. [Suspect]
     Active Substance: HYDROCORTISONE
     Indication: VASOPLEGIA SYNDROME
     Dosage: CONTINUATION OF STRESS DOSE
     Route: 065
  11. NOREPINEPHRINE. [Suspect]
     Active Substance: NOREPINEPHRINE
     Dosage: LOW DOSE
     Route: 065
  12. NOREPINEPHRINE. [Suspect]
     Active Substance: NOREPINEPHRINE
     Indication: VASOPLEGIA SYNDROME
     Dosage: TITRATION TO 0.625 MICROG/KG/MIN WITHIN THE FIRST 30 MINUTES
     Route: 065
  13. NOREPINEPHRINE. [Suspect]
     Active Substance: NOREPINEPHRINE
     Dosage: 0.25 MICROG/KG/MIN
     Route: 065
  14. ARGININE VASOPRESSIN [Suspect]
     Active Substance: VASOPRESSIN
     Indication: VASOPLEGIA SYNDROME
     Dosage: 0.06 UNITS/MIN
     Route: 065

REACTIONS (3)
  - Drug ineffective [Unknown]
  - Off label use [Unknown]
  - Intestinal ischaemia [Recovering/Resolving]
